FAERS Safety Report 6930019-8 (Version None)
Quarter: 2010Q3

REPORT INFORMATION
  Report Type: 
  Country: None (occurrence: None)
  Receive Date: 20100818
  Receipt Date: 20100809
  Transmission Date: 20110219
  Serious: Yes (Hospitalization)
  Sender: FDA-Public Use
  Company Number: FR-ASTRAZENECA-2010SE00136

PATIENT
  Age: 30911 Day
  Sex: Female

DRUGS (7)
  1. CRESTOR [Suspect]
     Route: 048
     Dates: start: 20091120, end: 20091211
  2. PLAVIX [Suspect]
     Route: 048
     Dates: start: 20091120, end: 20091211
  3. CORDARONE [Suspect]
     Route: 048
     Dates: start: 20091120, end: 20091211
  4. PROCORALAN [Suspect]
     Route: 048
     Dates: start: 20091120, end: 20091211
  5. ASPEGIC 1000 [Concomitant]
     Route: 048
  6. PRETERAX [Concomitant]
  7. ZYLORIC [Concomitant]
     Dates: end: 20091212

REACTIONS (2)
  - AGRANULOCYTOSIS [None]
  - EOSINOPHILIA [None]
